FAERS Safety Report 6213178-4 (Version None)
Quarter: 2009Q2

REPORT INFORMATION
  Report Type: 
  Country: None (occurrence: None)
  Receive Date: 20090603
  Receipt Date: 20090527
  Transmission Date: 20091009
  Serious: Yes (Hospitalization)
  Sender: FDA-Public Use
  Company Number: US-JNJFOC-20071201231

PATIENT
  Sex: Female
  Weight: 62.14 kg

DRUGS (17)
  1. GOLIMUMAB [Suspect]
     Route: 058
  2. GOLIMUMAB [Suspect]
     Route: 058
  3. GOLIMUMAB [Suspect]
     Route: 058
  4. GOLIMUMAB [Suspect]
     Route: 058
  5. GOLIMUMAB [Suspect]
     Dosage: WEEK 32
     Route: 058
  6. GOLIMUMAB [Suspect]
     Dosage: WEEK 28
     Route: 058
  7. GOLIMUMAB [Suspect]
     Indication: RHEUMATOID ARTHRITIS
     Dosage: WEEK 24
     Route: 058
  8. PLACEBO [Suspect]
     Dosage: WEEK 20
     Route: 058
  9. PLACEBO [Suspect]
     Dosage: WEEK 12
     Route: 058
  10. PLACEBO [Suspect]
     Dosage: WEEK 8
     Route: 058
  11. PLACEBO [Suspect]
     Dosage: WEEK 4
     Route: 058
  12. PLACEBO [Suspect]
     Indication: RHEUMATOID ARTHRITIS
     Dosage: WEEK 0
     Route: 058
  13. CLARITIN-D [Concomitant]
     Route: 048
  14. PREDNISONE [Concomitant]
     Route: 048
  15. FOLIC ACID [Concomitant]
     Route: 048
  16. METHOTREXATE [Concomitant]
     Route: 048
  17. ORTHO-NOVUM [Concomitant]
     Indication: OSTEOPOROSIS PROPHYLAXIS

REACTIONS (2)
  - HIP FRACTURE [None]
  - LOWER LIMB FRACTURE [None]
